FAERS Safety Report 20907958 (Version 1)
Quarter: 2022Q2

REPORT INFORMATION
  Report Type: Spontaneous
  Country: PL (occurrence: PL)
  Receive Date: 20220602
  Receipt Date: 20220602
  Transmission Date: 20220721
  Serious: Yes (Other)
  Sender: FDA-Public Use
  Company Number: PL-TEVA-2022-PL-2041160

PATIENT
  Age: 59 Year
  Sex: Male

DRUGS (21)
  1. CYCLOSPORINE [Suspect]
     Active Substance: CYCLOSPORINE
     Indication: Dermatitis atopic
     Route: 065
  2. VALSARTAN [Suspect]
     Active Substance: VALSARTAN
     Indication: Hypertension
     Dosage: 160 MILLIGRAM DAILY;
  3. AMITRIPTYLINE [Suspect]
     Active Substance: AMITRIPTYLINE
     Indication: Polyneuropathy
     Dosage: 120 MILLIGRAM DAILY;
  4. HYDROCHLOROTHIAZIDE [Suspect]
     Active Substance: HYDROCHLOROTHIAZIDE
     Indication: Hypertension
     Dosage: 25 MILLIGRAM DAILY;
  5. DILTIAZEM [Suspect]
     Active Substance: DILTIAZEM
     Indication: Hypertension
     Dosage: 120 MILLIGRAM DAILY;
  6. SALMETEROL [Concomitant]
     Active Substance: SALMETEROL
     Indication: Asthma
     Dosage: INHALATIONS TWICE DAILY
  7. FLUTICASONE [Concomitant]
     Active Substance: FLUTICASONE
     Indication: Asthma
  8. THEOPHYLLINE [Concomitant]
     Active Substance: THEOPHYLLINE
     Indication: Asthma
     Dosage: 250 MILLIGRAM DAILY;
  9. CETIRIZINE [Concomitant]
     Active Substance: CETIRIZINE HYDROCHLORIDE
     Indication: Asthma
     Dosage: 5 MILLIGRAM DAILY;
  10. FENOTEROL [Concomitant]
     Active Substance: FENOTEROL
     Indication: Asthma
     Dosage: INHALATION IF NECESSARY
  11. AZATHIOPRINE [Concomitant]
     Active Substance: AZATHIOPRINE
     Indication: Dermatitis atopic
  12. FLUOCINOLONE [Concomitant]
     Active Substance: FLUOCINOLONE
     Indication: Dermatitis atopic
  13. FLUMETHASONE [Concomitant]
     Active Substance: FLUMETHASONE
     Indication: Dermatitis atopic
  14. PREDNISOLONE [Concomitant]
     Active Substance: PREDNISOLONE
     Indication: Dermatitis atopic
  15. bituminosulfonate [Concomitant]
     Indication: Dermatitis atopic
  16. CLIOQUINOL [Concomitant]
     Active Substance: CLIOQUINOL
     Indication: Dermatitis atopic
  17. CLOBETASOL [Concomitant]
     Active Substance: CLOBETASOL
     Indication: Dermatitis atopic
     Route: 061
  18. METHYLPREDNISOLONE [Concomitant]
     Active Substance: METHYLPREDNISOLONE
     Indication: Dermatitis atopic
     Dosage: 4 MILLIGRAM DAILY;
  19. premixed insulin lispro protamine suspension [Concomitant]
     Indication: Type 2 diabetes mellitus
     Dosage: SUSPENSION
  20. gliclazide modified release [Concomitant]
     Indication: Type 2 diabetes mellitus
     Dosage: 30 MILLIGRAM DAILY;
  21. LEDIPASVIR\SOFOSBUVIR [Concomitant]
     Active Substance: LEDIPASVIR\SOFOSBUVIR
     Indication: Hepatitis C
     Dates: start: 2017

REACTIONS (3)
  - Acute kidney injury [Unknown]
  - Hypertension [Unknown]
  - Drug ineffective [Unknown]
